FAERS Safety Report 4438087-2 (Version None)
Quarter: 2004Q3

REPORT INFORMATION
  Report Type: 
  Country: None (occurrence: None)
  Receive Date: 20040831
  Receipt Date: 20040517
  Transmission Date: 20050211
  Serious: No
  Sender: FDA-Public Use
  Company Number: US-GLAXOSMITHKLINE-A0511120A

PATIENT
  Age: 51 Year
  Sex: Male

DRUGS (6)
  1. WELLBUTRIN XL [Suspect]
     Indication: DEPRESSION
     Dosage: 300MG PER DAY
     Route: 048
  2. TRAZODONE [Concomitant]
  3. VIRACEPT [Concomitant]
  4. COMBIVIR [Concomitant]
  5. PRAVACHOL [Concomitant]
  6. ZETIA [Concomitant]

REACTIONS (3)
  - DEPRESSED MOOD [None]
  - ERECTILE DYSFUNCTION [None]
  - SEMEN VOLUME DECREASED [None]
